FAERS Safety Report 13566153 (Version 1)
Quarter: 2017Q2

REPORT INFORMATION
  Report Type: Spontaneous
  Country: US (occurrence: US)
  Receive Date: 20170521
  Receipt Date: 20170521
  Transmission Date: 20170830
  Serious: No
  Sender: FDA-Public Use
  Company Number: US-DRREDDYS-USA/USA/16/0082704

PATIENT
  Age: 59 Year
  Sex: Male

DRUGS (1)
  1. ZENATANE [Suspect]
     Active Substance: ISOTRETINOIN
     Indication: ACNE
     Route: 048
     Dates: start: 20160303

REACTIONS (4)
  - Hypoaesthesia oral [Unknown]
  - Eye swelling [Unknown]
  - Feeling abnormal [Unknown]
  - Oral herpes [Unknown]

NARRATIVE: CASE EVENT DATE: 20160506
